FAERS Safety Report 19849424 (Version 1)
Quarter: 2021Q3

REPORT INFORMATION
  Report Type: Spontaneous
  Country: GB (occurrence: GB)
  Receive Date: 20210917
  Receipt Date: 20210917
  Transmission Date: 20211014
  Serious: Yes (Hospitalization)
  Sender: FDA-Public Use
  Company Number: GB-TEVA-2021-GB-1953589

PATIENT
  Sex: Female

DRUGS (11)
  1. LABETALOL [Suspect]
     Active Substance: LABETALOL\LABETALOL HYDROCHLORIDE
     Route: 065
  2. LANSOPRAZOLE. [Concomitant]
     Active Substance: LANSOPRAZOLE
     Dosage: 30MG
     Dates: start: 20210307
  3. CO?AMOXICLAV [Concomitant]
     Active Substance: AMOXICILLIN\CLAVULANATE POTASSIUM
     Route: 042
     Dates: start: 20210307
  4. LOSARTAN. [Suspect]
     Active Substance: LOSARTAN
     Dosage: 22.5 MILLIGRAM DAILY; AT NIGHT; DRUG DISCONTINUED
     Route: 065
     Dates: start: 20210310, end: 20210312
  5. ASPIRIN. [Concomitant]
     Active Substance: ASPIRIN
     Dosage: 75MG
  6. ATORVASTATIN [Concomitant]
     Active Substance: ATORVASTATIN
     Dosage: 40MG
     Dates: start: 20210307
  7. CLOPIDOGREL [Concomitant]
     Active Substance: CLOPIDOGREL BISULFATE
     Dosage: 75MG
     Dates: start: 20210307
  8. LOSARTAN. [Suspect]
     Active Substance: LOSARTAN
     Dosage: 50 MILLIGRAM DAILY; AT NIGHT
     Route: 065
     Dates: start: 20210306, end: 20210309
  9. THYROXINE [Concomitant]
     Active Substance: LEVOTHYROXINE
     Dosage: 100MG
  10. BISOPROLOL FUMARATE. [Suspect]
     Active Substance: BISOPROLOL FUMARATE
     Dosage: 2.25 MILLIGRAM DAILY; MORNING AND NIGHT
     Route: 065
     Dates: start: 20210307
  11. PARACETAMOL [Concomitant]
     Active Substance: ACETAMINOPHEN
     Dates: start: 20210307

REACTIONS (12)
  - Chest pain [Unknown]
  - Urine output increased [Unknown]
  - Abdominal pain [Unknown]
  - Lacrimation increased [Unknown]
  - Blood pressure increased [Unknown]
  - Eye irritation [Unknown]
  - Muscle spasms [Unknown]
  - Back pain [Unknown]
  - Upper-airway cough syndrome [Unknown]
  - Dry mouth [Unknown]
  - Urinary sediment [Unknown]
  - Rhinorrhoea [Unknown]

NARRATIVE: CASE EVENT DATE: 202103
